FAERS Safety Report 4625043-4 (Version None)
Quarter: 2005Q2

REPORT INFORMATION
  Report Type: 
  Country: None (occurrence: None)
  Receive Date: 20050401
  Receipt Date: 20050322
  Transmission Date: 20051028
  Serious: Yes (Death)
  Sender: FDA-Public Use
  Company Number: BE-BRISTOL-MYERS SQUIBB COMPANY-12906699

PATIENT
  Age: 42 Year
  Sex: Female

DRUGS (5)
  1. ATAZANAVIR [Suspect]
     Route: 048
     Dates: start: 20040701, end: 20050215
  2. VIDEX [Concomitant]
     Route: 048
     Dates: start: 20040701
  3. NORVIR [Concomitant]
     Route: 048
     Dates: start: 20040701
  4. VIREAD [Concomitant]
     Route: 048
     Dates: start: 20040701
  5. BACTRIM [Concomitant]
     Route: 048

REACTIONS (1)
  - ENCEPHALITIS BRAIN STEM [None]
